FAERS Safety Report 20378894 (Version 1)
Quarter: 2022Q1

REPORT INFORMATION
  Report Type: Spontaneous
  Country: CN (occurrence: CN)
  Receive Date: 20220126
  Receipt Date: 20220126
  Transmission Date: 20220423
  Serious: Yes (Hospitalization, Other)
  Sender: FDA-Public Use
  Company Number: CN-PFIZER INC-202200073298

PATIENT
  Age: 44 Year
  Sex: Male
  Weight: 62 kg

DRUGS (5)
  1. CELEBREX [Suspect]
     Active Substance: CELECOXIB
     Indication: Symptomatic treatment
     Dosage: 0.2 G, 2X/DAY
     Route: 048
     Dates: start: 20211210, end: 20211229
  2. CEFTAZIDIME [Concomitant]
     Active Substance: CEFTAZIDIME
     Indication: Symptomatic treatment
     Dosage: 1 G, 3X/DAY
     Route: 041
     Dates: start: 20211227, end: 20211229
  3. CEFUROXIME SODIUM [Concomitant]
     Active Substance: CEFUROXIME SODIUM
     Dosage: 1.5 G, 3X/DAY, Q8H
     Route: 041
     Dates: start: 20211209, end: 20211211
  4. METHYLPREDNISOLONE SODIUM SUCCINATE [Concomitant]
     Active Substance: METHYLPREDNISOLONE SODIUM SUCCINATE
     Dosage: 200 MG, 2X/DAY, Q12H
     Route: 041
     Dates: start: 20211210, end: 20211223
  5. METHYLPREDNISOLONE SODIUM SUCCINATE [Concomitant]
     Active Substance: METHYLPREDNISOLONE SODIUM SUCCINATE
     Dosage: 200 MG, 2X/DAY, Q12H
     Route: 041
     Dates: start: 20211228, end: 20211230

REACTIONS (2)
  - Drug eruption [Recovered/Resolved]
  - Body temperature increased [Recovered/Resolved]

NARRATIVE: CASE EVENT DATE: 20211217
